FAERS Safety Report 8156333-9 (Version None)
Quarter: 2012Q1

REPORT INFORMATION
  Report Type: 
  Country: None (occurrence: None)
  Receive Date: 20120222
  Receipt Date: 20110908
  Transmission Date: 20120608
  Serious: Yes (Hospitalization, Other)
  Sender: FDA-Public Use
  Company Number: US-BRISTOL-MYERS SQUIBB COMPANY-16041733

PATIENT
  Age: 90 Year
  Sex: Male

DRUGS (3)
  1. KENALOG [Suspect]
     Dosage: 3 INJ
  2. NORVASC [Concomitant]
  3. HYDROCHLOROTHIAZIDE [Concomitant]

REACTIONS (4)
  - LIP SWELLING [None]
  - SWELLING FACE [None]
  - RESPIRATORY DISORDER [None]
  - SWOLLEN TONGUE [None]
